FAERS Safety Report 18114714 (Version 1)
Quarter: 2020Q3

REPORT INFORMATION
  Report Type: Spontaneous
  Country: NO (occurrence: NO)
  Receive Date: 20200805
  Receipt Date: 20200805
  Transmission Date: 20201103
  Serious: Yes (Death, Other)
  Sender: FDA-Public Use
  Company Number: NO-BRISTOL-MYERS SQUIBB COMPANY-BMS-2020-062059

PATIENT
  Age: 65 Year
  Sex: Male

DRUGS (10)
  1. OPDIVO [Suspect]
     Active Substance: NIVOLUMAB
     Indication: METASTATIC MALIGNANT MELANOMA
     Dosage: 480 MILLIGRAM, Q4WK
     Route: 042
     Dates: start: 20200424, end: 20200424
  2. NYCOPLUS FOLSYRE [Concomitant]
     Indication: VITAMIN SUPPLEMENTATION
     Dosage: 400 MICROGRAM, DAILY DOSE
     Route: 048
     Dates: end: 2020
  3. METOPROLOL TARTRATE. [Concomitant]
     Active Substance: METOPROLOL TARTRATE
     Indication: CARDIOVASCULAR DISORDER
     Dosage: 25 MILLIGRAM, Q12H
     Route: 048
     Dates: start: 2017
  4. GLUCOCORTICOIDS [Concomitant]
     Active Substance: UNSPECIFIED INGREDIENT
     Indication: PRODUCT USED FOR UNKNOWN INDICATION
     Dosage: UNK
     Route: 065
     Dates: start: 20200523
  5. DIPRASORIN [Concomitant]
     Indication: TRANSIENT ISCHAEMIC ATTACK
     Dosage: 1 DOSAGE FORM, Q12H
     Route: 048
     Dates: start: 2017, end: 2020
  6. CELLCEPT [Concomitant]
     Active Substance: MYCOPHENOLATE MOFETIL\MYCOPHENOLATE MOFETIL HYDROCHLORIDE
     Indication: IMMUNE-MEDIATED HEPATITIS
     Route: 065
     Dates: start: 20200523
  7. IMUREL [AZATHIOPRINE SODIUM] [Concomitant]
     Active Substance: AZATHIOPRINE SODIUM
     Indication: IMMUNE-MEDIATED HEPATITIS
     Route: 048
     Dates: start: 202006
  8. SIMVASTATIN SANDOZ [Concomitant]
     Active Substance: SIMVASTATIN
     Indication: CARDIOVASCULAR DISORDER
     Dosage: 40 MILLIGRAM, DAILY DOSE
     Route: 048
     Dates: start: 2017, end: 2020
  9. LAMICTAL [Concomitant]
     Active Substance: LAMOTRIGINE
     Indication: BIPOLAR DISORDER
     Dosage: 350 MILLIGRAM, DAILY DOSE
     Route: 048
     Dates: end: 2020
  10. SOMAC [Concomitant]
     Active Substance: PANTOPRAZOLE SODIUM
     Indication: PROPHYLAXIS
     Dosage: 40 MILLIGRAM, Q12H
     Route: 048
     Dates: start: 2020

REACTIONS (3)
  - Small intestinal haemorrhage [Fatal]
  - Immune-mediated hepatitis [Fatal]
  - Enteritis [Fatal]

NARRATIVE: CASE EVENT DATE: 20200516
